FAERS Safety Report 4880294-9 (Version None)
Quarter: 2006Q1

REPORT INFORMATION
  Report Type: 
  Country: None (occurrence: None)
  Receive Date: 20060111
  Receipt Date: 20051229
  Transmission Date: 20060701
  Serious: Yes (Other)
  Sender: FDA-Public Use
  Company Number: 2006000492

PATIENT
  Age: 59 Year
  Sex: Male
  Weight: 90.7194 kg

DRUGS (2)
  1. LIPITOR [Suspect]
     Indication: MYOCARDIAL INFARCTION
     Dosage: 40 MG (40 MG, 1 IN 1 D)
  2. GLIPIZIDE [Concomitant]

REACTIONS (3)
  - MULTIPLE MYELOMA [None]
  - POST-TRAUMATIC STRESS DISORDER [None]
  - UNEVALUABLE EVENT [None]
